FAERS Safety Report 21848974 (Version 1)
Quarter: 2023Q1

REPORT INFORMATION
  Report Type: Spontaneous
  Country: CA (occurrence: CA)
  Receive Date: 20230111
  Receipt Date: 20230111
  Transmission Date: 20230417
  Serious: Yes (Life-Threatening, Hospitalization, Other)
  Sender: FDA-Public Use
  Company Number: CA-PFIZER INC-202300010950

PATIENT
  Age: 29 Year
  Sex: Female
  Weight: 61 kg

DRUGS (2)
  1. CYKLOKAPRON [Suspect]
     Active Substance: TRANEXAMIC ACID
     Indication: Menometrorrhagia
     Dosage: 1000 MG, 3X/DAY
     Route: 048
  2. LUPRON DEPOT [Suspect]
     Active Substance: LEUPROLIDE ACETATE
     Indication: Uterine leiomyoma
     Dosage: 11 MG (1 EVERY 3 MONTHS)
     Route: 030

REACTIONS (5)
  - Acute myocardial infarction [Unknown]
  - Arterial thrombosis [Unknown]
  - Coronary angioplasty [Unknown]
  - Coronary arterial stent insertion [Unknown]
  - Thrombectomy [Unknown]
